FAERS Safety Report 9148439 (Version 4)
Quarter: 2013Q2

REPORT INFORMATION
  Report Type: Report from Study
  Country: DE (occurrence: DE)
  Receive Date: 20130308
  Receipt Date: 20130520
  Transmission Date: 20140414
  Serious: Yes (Other)
  Sender: FDA-Public Use
  Company Number: PHHO2013DE003478

PATIENT
  Age: 46 Year
  Sex: Female
  Weight: 78.1 kg

DRUGS (8)
  1. EVEROLIMUS [Suspect]
     Indication: TUBEROUS SCLEROSIS
     Dosage: 10 MG, QD
     Route: 048
     Dates: start: 20100914, end: 20110112
  2. EVEROLIMUS [Suspect]
     Dosage: 5 MG, QD
     Route: 048
     Dates: start: 20110119, end: 20130125
  3. EVEROLIMUS [Suspect]
     Dosage: 5 MG, QD
     Route: 048
     Dates: start: 20130224, end: 20130304
  4. EVEROLIMUS [Suspect]
     Dosage: 5 MG, QD
     Route: 048
     Dates: start: 20130318
  5. VOTUM [Concomitant]
     Indication: HYPERTENSION
     Dosage: 10 MG, QD
     Route: 048
     Dates: start: 201002
  6. OPIPRAMOL [Concomitant]
     Indication: DEPRESSION
     Dosage: 100 MG, QD
     Route: 048
     Dates: start: 201003
  7. AMINEURIN [Concomitant]
     Indication: DEPRESSION
     Dosage: 100 MG, QD
     Route: 048
     Dates: start: 20120531
  8. TORASEMID [Concomitant]
     Indication: OEDEMA
     Dosage: 5 MG, QD
     Route: 048
     Dates: start: 20120811

REACTIONS (1)
  - Ovarian cyst [Recovered/Resolved]
